FAERS Safety Report 7087123-6 (Version None)
Quarter: 2010Q4

REPORT INFORMATION
  Report Type: 
  Country: None (occurrence: None)
  Receive Date: 20101106
  Receipt Date: 20101028
  Transmission Date: 20110411
  Serious: No
  Sender: FDA-Public Use
  Company Number: US-WYE-H18440510

PATIENT
  Sex: Male
  Weight: 74.91 kg

DRUGS (2)
  1. PRISTIQ [Suspect]
     Indication: ATTENTION DEFICIT/HYPERACTIVITY DISORDER
     Route: 048
     Dates: start: 20101021
  2. PRISTIQ [Suspect]
     Indication: COMPULSIONS

REACTIONS (1)
  - DRUG SCREEN POSITIVE [None]
